FAERS Safety Report 10402833 (Version 1)
Quarter: 2014Q3

REPORT INFORMATION
  Report Type: Spontaneous
  Country: CA (occurrence: None)
  Receive Date: 20140821
  Receipt Date: 20140821
  Transmission Date: 20150326
  Serious: Yes (Disabling)
  Sender: FDA-Public Use
  Company Number: None

PATIENT
  Age: 30 Year
  Sex: Female
  Weight: 49.9 kg

DRUGS (1)
  1. MEFLOQUINE 250MG [Suspect]
     Active Substance: MEFLOQUINE
     Indication: MALARIA PROPHYLAXIS
     Dosage: 1 PILL ONCE WEEKLY  TAKEN BY MOUTH
     Route: 048
     Dates: start: 20130725, end: 20130919

REACTIONS (11)
  - Vertigo [None]
  - Abnormal behaviour [None]
  - Suicidal ideation [None]
  - Affective disorder [None]
  - Fatigue [None]
  - Abdominal discomfort [None]
  - Dizziness [None]
  - Headache [None]
  - Nausea [None]
  - Abnormal dreams [None]
  - Anxiety [None]

NARRATIVE: CASE EVENT DATE: 20130806
